FAERS Safety Report 9674809 (Version 1)
Quarter: 2013Q4

REPORT INFORMATION
  Report Type: Spontaneous
  Country: US (occurrence: None)
  Receive Date: 20131106
  Receipt Date: 20131106
  Transmission Date: 20140711
  Serious: Yes (Other)
  Sender: FDA-Public Use
  Company Number: None

PATIENT
  Age: 33 Year
  Sex: Female
  Weight: 49.9 kg

DRUGS (1)
  1. PROGESTERONE [Suspect]
     Indication: INFERTILITY

REACTIONS (9)
  - Rash generalised [None]
  - Rash maculo-papular [None]
  - Erythema [None]
  - Pruritus [None]
  - Pain [None]
  - Discomfort [None]
  - Drug eruption [None]
  - Dry skin [None]
  - Skin exfoliation [None]
